FAERS Safety Report 19788723 (Version 4)
Quarter: 2021Q4

REPORT INFORMATION
  Report Type: Spontaneous
  Country: US (occurrence: US)
  Receive Date: 20210904
  Receipt Date: 20211030
  Transmission Date: 20220303
  Serious: No
  Sender: FDA-Public Use
  Company Number: US-UNITED THERAPEUTICS-UNT-2021-017085

PATIENT
  Sex: Female

DRUGS (1)
  1. TYVASO [Suspect]
     Active Substance: TREPROSTINIL
     Indication: Product used for unknown indication
     Dosage: UNK

REACTIONS (12)
  - Visual impairment [Unknown]
  - Chest pain [Unknown]
  - Feeling abnormal [Unknown]
  - Tooth loss [Unknown]
  - Nausea [Unknown]
  - Dizziness [Unknown]
  - Headache [Unknown]
  - Weight decreased [Unknown]
  - Skin discomfort [Unknown]
  - Alopecia [Unknown]
  - Decreased appetite [Unknown]
  - Depression [Unknown]
